FAERS Safety Report 9784328 (Version 1)
Quarter: 2013Q4

REPORT INFORMATION
  Report Type: Spontaneous
  Country: US (occurrence: US)
  Receive Date: 20131226
  Receipt Date: 20131226
  Transmission Date: 20140711
  Serious: No
  Sender: FDA-Public Use
  Company Number: US-BIOGENIDEC-2013BI122926

PATIENT
  Age: 51 Year
  Sex: Female

DRUGS (8)
  1. TECFIDERA [Suspect]
     Indication: MULTIPLE SCLEROSIS
     Route: 048
     Dates: start: 20131027, end: 20131101
  2. KLONOPIN [Concomitant]
  3. GABAPENTIN [Concomitant]
  4. CELEXA [Concomitant]
  5. ANTIVERT [Concomitant]
  6. EFFEXOR [Concomitant]
  7. TOPAMAX [Concomitant]
  8. VITAMIN D [Concomitant]

REACTIONS (1)
  - Malaise [Recovered/Resolved]
